FAERS Safety Report 15365226 (Version 1)
Quarter: 2018Q3

REPORT INFORMATION
  Report Type: Spontaneous
  Country: DE (occurrence: DE)
  Receive Date: 20180910
  Receipt Date: 20180910
  Transmission Date: 20181010
  Serious: Yes (Other)
  Sender: FDA-Public Use
  Company Number: DE-B.I. PHARMACEUTICALS,INC./RIDGEFIELD-2018-BI-044440

PATIENT
  Sex: Male

DRUGS (3)
  1. TAXOTERE [Concomitant]
     Active Substance: DOCETAXEL
     Indication: PRODUCT USED FOR UNKNOWN INDICATION
     Route: 065
     Dates: start: 201601, end: 201602
  2. VARGATEF [Suspect]
     Active Substance: NINTEDANIB
     Indication: ADENOCARCINOMA
  3. VARGATEF [Suspect]
     Active Substance: NINTEDANIB
     Indication: NON-SMALL CELL LUNG CANCER
     Route: 065

REACTIONS (1)
  - Malignant neoplasm progression [Unknown]
